FAERS Safety Report 20492202 (Version 10)
Quarter: 2024Q4

REPORT INFORMATION
  Report Type: Spontaneous
  Country: US (occurrence: US)
  Receive Date: 20220218
  Receipt Date: 20241203
  Transmission Date: 20250115
  Serious: Yes (Other)
  Sender: PFIZER
  Company Number: US-PFIZER INC-202200203297

PATIENT
  Age: 86 Year
  Sex: Female

DRUGS (1)
  1. PREMARIN [Suspect]
     Active Substance: ESTROGENS, CONJUGATED
     Dosage: TAKE 1 TABLET (0.3 MG TOTAL) BY MOUTH DAILY. TAKE DAILY FOR 21 DAYS THEN DO NOT TAKE FOR 7 DAYS.
     Route: 048

REACTIONS (3)
  - Deafness [Unknown]
  - Cardiac disorder [Unknown]
  - Hypoacusis [Unknown]
